FAERS Safety Report 10580037 (Version 2)
Quarter: 2015Q1

REPORT INFORMATION
  Report Type: Spontaneous
  Country: US (occurrence: US)
  Receive Date: 20141112
  Receipt Date: 20150209
  Transmission Date: 20150720
  Serious: No
  Sender: FDA-Public Use
  Company Number: US-ELI_LILLY_AND_COMPANY-US201411004884

PATIENT
  Sex: Male
  Weight: 95.24 kg

DRUGS (1)
  1. CIALIS [Suspect]
     Active Substance: TADALAFIL
     Indication: POOR PERIPHERAL CIRCULATION
     Dosage: UNK, UNKNOWN
     Route: 048

REACTIONS (2)
  - Blood test abnormal [Unknown]
  - Off label use [Unknown]
